FAERS Safety Report 9385281 (Version 3)
Quarter: 2014Q1

REPORT INFORMATION
  Report Type: Spontaneous
  Country: US (occurrence: US)
  Receive Date: 20130705
  Receipt Date: 20140122
  Transmission Date: 20141002
  Serious: Yes (Death)
  Sender: FDA-Public Use
  Company Number: US-GLAXOSMITHKLINE-A1029706A

PATIENT
  Age: 60 Year
  Sex: Female

DRUGS (1)
  1. AVANDIA [Suspect]
     Indication: DIABETES MELLITUS
     Route: 048
     Dates: start: 2006, end: 2009

REACTIONS (3)
  - Brain injury [Fatal]
  - Acute respiratory failure [Fatal]
  - Cardiac arrest [Fatal]
